FAERS Safety Report 6002210-9 (Version None)
Quarter: 2008Q4

REPORT INFORMATION
  Report Type: 
  Country: None (occurrence: None)
  Receive Date: 20081212
  Receipt Date: 20081201
  Transmission Date: 20090506
  Serious: Yes (Other)
  Sender: FDA-Public Use
  Company Number: 2008AL012186

PATIENT
  Sex: Female

DRUGS (1)
  1. DIGOXIN [Suspect]
     Dosage: PO
     Route: 048

REACTIONS (7)
  - ANXIETY [None]
  - DIZZINESS [None]
  - HYPOTENSION [None]
  - INJURY [None]
  - NAUSEA [None]
  - PAIN [None]
  - VOMITING [None]
